FAERS Safety Report 11872771 (Version 1)
Quarter: 2015Q4

REPORT INFORMATION
  Report Type: Spontaneous
  Country: US (occurrence: US)
  Receive Date: 20151228
  Receipt Date: 20151228
  Transmission Date: 20160305
  Serious: No
  Sender: FDA-Public Use
  Company Number: US-PFIZER INC-2015424341

PATIENT
  Age: 79 Year
  Sex: Female
  Weight: 68 kg

DRUGS (7)
  1. LYRICA [Suspect]
     Active Substance: PREGABALIN
     Indication: FIBROMYALGIA
  2. IBANDRONATE [Concomitant]
     Active Substance: IBANDRONATE SODIUM
     Indication: PAIN
     Dosage: 150 MG, MONTHLY(ONCE A MONTH)
     Dates: start: 20151202
  3. CALCIUM MAGNESIUM ZINK [Concomitant]
     Indication: WOUND
     Dosage: UNK
     Dates: start: 2013
  4. LYRICA [Suspect]
     Active Substance: PREGABALIN
     Indication: PAIN
     Dosage: 100 MG, 3X/DAY
  5. ARTHRITIS TYLENOL [Concomitant]
     Indication: ARTHRITIS
     Dosage: 2 DF, DAILY (TAKES TWO A DAY AS NEEDED FOR PAIN)
  6. WARFARIN [Concomitant]
     Active Substance: WARFARIN
     Indication: COAGULOPATHY
     Dosage: UNK UNK, DAILY(DOSE VARIES, 5-7.5 TO 10)
  7. CRESTOR [Concomitant]
     Active Substance: ROSUVASTATIN CALCIUM
     Indication: BLOOD CHOLESTEROL INCREASED
     Dosage: SHE IS PRESCRIBED TO TAKE 20 MG, BUT SHE TAKES 5 MG OR 10 MG TWO TO THREE TIMES A WEEK

REACTIONS (8)
  - Fall [Unknown]
  - Head injury [Unknown]
  - Wound [Unknown]
  - Condition aggravated [Not Recovered/Not Resolved]
  - Haematoma [Unknown]
  - Limb injury [Unknown]
  - Dizziness [Not Recovered/Not Resolved]
  - Eye contusion [Unknown]

NARRATIVE: CASE EVENT DATE: 201506
